FAERS Safety Report 7561029-8 (Version None)
Quarter: 2011Q2

REPORT INFORMATION
  Report Type: 
  Country: None (occurrence: None)
  Receive Date: 20110621
  Receipt Date: 20100921
  Transmission Date: 20111010
  Serious: No
  Sender: FDA-Public Use
  Company Number: US-ASTRAZENECA-2010SE28737

PATIENT
  Age: 81 Year
  Sex: Female
  Weight: 59 kg

DRUGS (11)
  1. STRESS WITH ZINC [Concomitant]
  2. ATACAND [Suspect]
     Route: 048
  3. ATACAND [Suspect]
     Route: 048
  4. CRESTOR [Concomitant]
     Indication: BLOOD CHOLESTEROL
  5. CELEBREX [Concomitant]
     Indication: ARTHRITIS
  6. CALCIUM PLUS VITAMIN D [Concomitant]
  7. GLUCOSAMINE CHONDROITIN [Concomitant]
  8. ATACAND HCT [Suspect]
     Dosage: 8 MG DAILY
     Route: 048
  9. WARFARIN SODIUM [Concomitant]
     Indication: CARDIAC DISORDER
  10. ASPIRIN [Concomitant]
  11. ALENDRONATE SODIUM [Concomitant]
     Indication: OSTEOPOROSIS

REACTIONS (1)
  - THROAT IRRITATION [None]
